FAERS Safety Report 9234225 (Version 1)
Quarter: 2013Q2

REPORT INFORMATION
  Report Type: Spontaneous
  Country: FR (occurrence: FR)
  Receive Date: 20130416
  Receipt Date: 20130416
  Transmission Date: 20140414
  Serious: Yes (Other)
  Sender: FDA-Public Use
  Company Number: FR-ASTRAZENECA-2012SE91259

PATIENT
  Age: 15138 Day
  Sex: Male
  Weight: 92 kg

DRUGS (6)
  1. XEROQUEL [Suspect]
     Indication: SCHIZOPHRENIA
     Route: 048
     Dates: start: 20121120, end: 20121122
  2. AOTAL [Concomitant]
     Indication: ALCOHOLISM
     Dates: start: 20121015
  3. BEVITINE [Concomitant]
     Indication: VITAMIN SUPPLEMENTATION
     Dates: start: 20121015
  4. SERESTA [Concomitant]
     Indication: ANXIOLYTIC THERAPY
     Dates: start: 20121015
  5. SEROPLEX [Concomitant]
     Indication: DEPRESSION
     Dates: start: 20121018
  6. SYMBICORT TBH [Concomitant]
     Indication: ASTHMA
     Dosage: 200, TWO INHALATIONS, TWICE DAILY
     Route: 055
     Dates: start: 20121015

REACTIONS (2)
  - Tonsillitis [Recovered/Resolved]
  - Neutropenia [Recovered/Resolved]
